FAERS Safety Report 11742360 (Version 1)
Quarter: 2015Q4

REPORT INFORMATION
  Report Type: Spontaneous
  Country: US (occurrence: None)
  Receive Date: 20151113
  Receipt Date: 20151113
  Transmission Date: 20160304
  Serious: Yes (Life-Threatening)
  Sender: FDA-Public Use
  Company Number: None

PATIENT
  Age: 54 Year
  Sex: Female
  Weight: 99.79 kg

DRUGS (1)
  1. FENTANYL TRANSDERMAL SYSTEM [Suspect]
     Active Substance: FENTANYL
     Indication: CAUDA EQUINA SYNDROME
     Dosage: 1 EVERY 2 DAYS?APPLIED AS MEDICATED PATCH TO SKIN
     Route: 061

REACTIONS (3)
  - Product quality issue [None]
  - Device malfunction [None]
  - Overdose [None]

NARRATIVE: CASE EVENT DATE: 20151105
